FAERS Safety Report 15370706 (Version 1)
Quarter: 2018Q3

REPORT INFORMATION
  Report Type: Spontaneous
  Country: RU (occurrence: RU)
  Receive Date: 20180911
  Receipt Date: 20180911
  Transmission Date: 20181010
  Serious: Yes (Hospitalization)
  Sender: FDA-Public Use
  Company Number: RU-JUBILANT CADISTA PHARMACEUTICALS-2018JUB00366

PATIENT
  Age: 75 Year
  Sex: Male

DRUGS (9)
  1. DIGOXIN. [Concomitant]
     Active Substance: DIGOXIN
     Dosage: 0.375 MG, 1X/DAY
     Route: 065
  2. AMLODIPINE [Concomitant]
     Active Substance: AMLODIPINE BESYLATE
     Dosage: 2.5 MG, 1X/DAY
     Route: 065
  3. DABIGATRAN [Suspect]
     Active Substance: DABIGATRAN
     Dosage: 200 MG, 1X/DAY
     Route: 065
  4. ATORVASTATIN [Concomitant]
     Active Substance: ATORVASTATIN
     Dosage: 20 MG, 1X/DAY
     Route: 065
  5. METOPROLOL SUCCINATE. [Concomitant]
     Active Substance: METOPROLOL SUCCINATE
     Dosage: 150 MG, 1X/DAY
     Route: 065
  6. GLICLAZID [Concomitant]
     Dosage: 30 MG, 1X/DAY
     Route: 065
  7. SPIRONOLACTONE. [Suspect]
     Active Substance: SPIRONOLACTONE
     Dosage: 50 MG, 1X/DAY
     Route: 065
  8. ENALAPRIL [Suspect]
     Active Substance: ENALAPRIL
     Dosage: 20 MG, 1X/DAY
     Route: 065
  9. FUROSEMIDE. [Concomitant]
     Active Substance: FUROSEMIDE
     Dosage: 80 MG, 1X/DAY
     Route: 065

REACTIONS (4)
  - Renal injury [Recovered/Resolved]
  - Haemorrhage [Recovered/Resolved]
  - Drug interaction [Recovered/Resolved]
  - Coagulopathy [Recovered/Resolved]
